FAERS Safety Report 4598142-3 (Version None)
Quarter: 2005Q1

REPORT INFORMATION
  Report Type: 
  Country: None (occurrence: None)
  Receive Date: 20050301
  Receipt Date: 20050301
  Transmission Date: 20050727
  Serious: Yes (Hospitalization)
  Sender: FDA-Public Use
  Company Number: None

PATIENT
  Age: 69 Year
  Sex: Male
  Weight: 67.1324 kg

DRUGS (9)
  1. CISPLATIN [Suspect]
     Indication: OESOPHAGEAL CARCINOMA
     Dosage: 20MG/M=36MG D1-5
  2. FLUOROURACIL [Suspect]
     Indication: OESOPHAGEAL CARCINOMA
     Dosage: 225MG/M/D
  3. RISPERIDONE [Concomitant]
  4. OMEPRAZOLE [Concomitant]
  5. METOCLOPRAMIDE [Concomitant]
  6. ZOFRAN [Concomitant]
  7. LEVOTHYROXINE [Concomitant]
  8. ASPIRIN [Concomitant]
  9. LIQUID IMODIUM [Concomitant]

REACTIONS (15)
  - ACIDOSIS [None]
  - CHEST PAIN [None]
  - CHILLS [None]
  - CYANOSIS [None]
  - DECREASED APPETITE [None]
  - DIARRHOEA [None]
  - DYSPNOEA [None]
  - EMOTIONAL DISTRESS [None]
  - GASTROINTESTINAL HAEMORRHAGE [None]
  - HAEMATOCRIT INCREASED [None]
  - HYPOTENSION [None]
  - HYPOVOLAEMIA [None]
  - MUCOSAL INFLAMMATION [None]
  - ORAL INTAKE REDUCED [None]
  - OXYGEN SATURATION DECREASED [None]
